FAERS Safety Report 11440610 (Version 1)
Quarter: 2015Q3

REPORT INFORMATION
  Report Type: Spontaneous
  Country: US (occurrence: US)
  Receive Date: 20150821
  Receipt Date: 20150821
  Transmission Date: 20151125
  Serious: Yes (Hospitalization)
  Sender: FDA-Public Use
  Company Number: US-ELI_LILLY_AND_COMPANY-US200706006551

PATIENT
  Sex: Female

DRUGS (10)
  1. CYMBALTA [Suspect]
     Active Substance: DULOXETINE HYDROCHLORIDE
     Indication: BIPOLAR DISORDER
     Dosage: 30 MG, UNK
     Dates: start: 2004, end: 20070623
  2. TOPAMAX [Concomitant]
     Active Substance: TOPIRAMATE
  3. NAPROSYN [Concomitant]
     Active Substance: NAPROXEN
  4. LOXITANE [Concomitant]
     Active Substance: LOXAPINE SUCCINATE
  5. NEXIUM [Concomitant]
     Active Substance: ESOMEPRAZOLE MAGNESIUM
  6. GLYCOLAX [Concomitant]
     Active Substance: POLYETHYLENE GLYCOL 3350
  7. XANAX [Concomitant]
     Active Substance: ALPRAZOLAM
  8. LITHIUM. [Concomitant]
     Active Substance: LITHIUM
  9. LEVOXYL [Concomitant]
     Active Substance: LEVOTHYROXINE SODIUM
  10. RESTORIL [Concomitant]
     Active Substance: TEMAZEPAM

REACTIONS (9)
  - Fatigue [Recovering/Resolving]
  - Diarrhoea [Not Recovered/Not Resolved]
  - Visual impairment [Unknown]
  - Psychotic disorder [Recovering/Resolving]
  - Mania [Recovering/Resolving]
  - Paraesthesia [Unknown]
  - Drug effect decreased [Recovering/Resolving]
  - Hallucination, auditory [Unknown]
  - Suicidal ideation [Recovering/Resolving]

NARRATIVE: CASE EVENT DATE: 200706
